FAERS Safety Report 16457214 (Version 1)
Quarter: 2019Q2

REPORT INFORMATION
  Report Type: Spontaneous
  Country: US (occurrence: US)
  Receive Date: 20190510
  Receipt Date: 20190510
  Transmission Date: 20190711
  Serious: Yes (Hospitalization)
  Sender: FDA-Public Use
  Company Number: None

PATIENT
  Age: 28 Year
  Sex: Male
  Weight: 68 kg

DRUGS (3)
  1. ELOXATIN [Suspect]
     Active Substance: OXALIPLATIN
     Dates: end: 20190502
  2. LEUCOVORIN CALCIUM. [Suspect]
     Active Substance: LEUCOVORIN CALCIUM
     Dates: end: 20190502
  3. 5-FLUOROURACIL (F5-FU) [Suspect]
     Active Substance: FLUOROURACIL
     Dates: end: 20190504

REACTIONS (4)
  - Abdominal distension [None]
  - Abdominal rigidity [None]
  - Constipation [None]
  - Vomiting [None]

NARRATIVE: CASE EVENT DATE: 20190508
